FAERS Safety Report 5808261-9 (Version None)
Quarter: 2008Q3

REPORT INFORMATION
  Report Type: 
  Country: None (occurrence: None)
  Receive Date: 20080709
  Receipt Date: 20080627
  Transmission Date: 20090109
  Serious: Yes (Death, Life-Threatening, Hospitalization)
  Sender: FDA-Public Use
  Company Number: 2007US002862

PATIENT
  Age: 69 Year
  Sex: Male

DRUGS (7)
  1. PROGRAF [Suspect]
     Indication: LIVER TRANSPLANT
     Dosage: 2 MG, BID, ORAL
     Route: 048
     Dates: start: 20070328, end: 20071011
  2. MYCOPHENOLATE MOFETIL [Suspect]
     Indication: LIVER TRANSPLANT
     Dosage: 600 MG, BID, ORAL
     Route: 048
     Dates: start: 20070328, end: 20071011
  3. PREDNISOLONE ACETATE [Suspect]
     Indication: LIVER TRANSPLANT
     Dosage: 5 MG, UID/QD, ORAL
     Route: 048
     Dates: start: 20070328
  4. SEPTRA [Concomitant]
  5. VALCYTE (VALAGANCICLOVIR HYDROCHLORIDE) [Concomitant]
  6. NEXIUM (ESOMPERAZOLE MAGNESIUM) [Concomitant]
  7. ASPIRIN [Concomitant]

REACTIONS (10)
  - ASCITES [None]
  - COLLAPSE OF LUNG [None]
  - FRACTURED SACRUM [None]
  - HEPATIC NEOPLASM MALIGNANT RECURRENT [None]
  - LUNG NEOPLASM [None]
  - LYMPHADENOPATHY [None]
  - MASS [None]
  - PLEURAL EFFUSION [None]
  - PNEUMONIA [None]
  - PULMONARY OEDEMA [None]
